FAERS Safety Report 4626336-7 (Version None)
Quarter: 2005Q2

REPORT INFORMATION
  Report Type: 
  Country: None (occurrence: None)
  Receive Date: 20050404
  Receipt Date: 20050329
  Transmission Date: 20051028
  Serious: Yes (Life-Threatening, Hospitalization)
  Sender: FDA-Public Use
  Company Number: US-GLAXOSMITHKLINE-A0551785A

PATIENT
  Age: 55 Year
  Sex: Male

DRUGS (5)
  1. LAMIVUDINE [Suspect]
     Indication: HEPATITIS B
     Route: 048
     Dates: start: 20030310, end: 20040411
  2. ADEFOVIR DIPIVOXIL KIT [Suspect]
     Dosage: 10MG PER DAY
     Route: 048
     Dates: start: 20030310, end: 20040411
  3. SELEGILINE HCL [Suspect]
     Indication: HIV INFECTION
     Dosage: 1MG PER DAY
     Route: 062
     Dates: start: 20040330, end: 20040411
  4. ABACAVIR [Concomitant]
     Indication: HIV INFECTION
     Dates: start: 19990608, end: 20040401
  5. EFAVIRENZ [Concomitant]
     Indication: HIV INFECTION
     Dates: start: 19990608, end: 20040401

REACTIONS (13)
  - ANION GAP INCREASED [None]
  - ASTHENIA [None]
  - BLOOD CREATININE INCREASED [None]
  - BLOOD UREA INCREASED [None]
  - INCONTINENCE [None]
  - LEUKOCYTOSIS [None]
  - METABOLIC ACIDOSIS [None]
  - MYOPATHY [None]
  - PCO2 DECREASED [None]
  - RENAL FAILURE ACUTE [None]
  - SEPSIS [None]
  - URINE ANALYSIS ABNORMAL [None]
  - WHITE BLOOD CELL COUNT INCREASED [None]
